FAERS Safety Report 5251751-0 (Version None)
Quarter: 2007Q1

REPORT INFORMATION
  Report Type: 
  Country: None (occurrence: None)
  Receive Date: 20070228
  Receipt Date: 20061025
  Transmission Date: 20070707
  Serious: No
  Sender: FDA-Public Use
  Company Number: US-GLAXOSMITHKLINE-A0624906A

PATIENT
  Sex: Male

DRUGS (2)
  1. LAMICTAL [Suspect]
  2. NO CONCURRENT MEDICATION [Concomitant]

REACTIONS (2)
  - ENAMEL ANOMALY [None]
  - TOOTH INJURY [None]
